FAERS Safety Report 9628636 (Version 1)
Quarter: 2013Q4

REPORT INFORMATION
  Report Type: Spontaneous
  Country: FR (occurrence: FR)
  Receive Date: 20131017
  Receipt Date: 20131017
  Transmission Date: 20140711
  Serious: Yes (Other)
  Sender: FDA-Public Use
  Company Number: FR-JNJFOC-20131005440

PATIENT
  Age: 37 Year
  Sex: Male

DRUGS (3)
  1. XEPLION [Suspect]
     Indication: PSYCHOTIC DISORDER
     Route: 030
  2. CYMBALTA [Concomitant]
     Route: 065
  3. LAMICTAL [Concomitant]
     Route: 065

REACTIONS (2)
  - Neutropenia [Unknown]
  - Blood creatine phosphokinase increased [Unknown]
